FAERS Safety Report 5607315-X (Version None)
Quarter: 2008Q1

REPORT INFORMATION
  Report Type: 
  Country: None (occurrence: None)
  Receive Date: 20080130
  Receipt Date: 20080118
  Transmission Date: 20080703
  Serious: Yes (Death)
  Sender: FDA-Public Use
  Company Number: BR-JNJFOC-20080104736

PATIENT
  Sex: Female

DRUGS (1)
  1. ACETAMINOPHEN W/ CODEINE [Suspect]
     Indication: DRUG USE FOR UNKNOWN INDICATION
     Dosage: ACETAMINOPHEN 500 MG / CODEINE PHOSPHATE 30MG
     Route: 048

REACTIONS (1)
  - DEATH [None]
